FAERS Safety Report 4524595-2 (Version None)
Quarter: 2004Q4

REPORT INFORMATION
  Report Type: 
  Country: None (occurrence: None)
  Receive Date: 20041117
  Receipt Date: 20040629
  Transmission Date: 20050328
  Serious: Yes (Life-Threatening)
  Sender: FDA-Public Use
  Company Number: US-JNJFOC-20040705747

PATIENT
  Age: 83 Year
  Sex: Female

DRUGS (2)
  1. LEVOFLOXACIN [Suspect]
     Indication: PNEUMONIA
     Dosage: 250 MG, 1 IN 1 DAY, ORAL
     Route: 048
     Dates: start: 20030523, end: 20030528
  2. QUINIDINE SULFATE [Suspect]
     Indication: ATRIAL FIBRILLATION
     Dosage: 400 MG, 1 IN 6 HOUR, ORAL
     Route: 048
     Dates: start: 20030526

REACTIONS (1)
  - TORSADE DE POINTES [None]
